FAERS Safety Report 10371534 (Version 4)
Quarter: 2014Q3

REPORT INFORMATION
  Report Type: Spontaneous
  Country: US (occurrence: US)
  Receive Date: 20140808
  Receipt Date: 20140923
  Transmission Date: 20150326
  Serious: No
  Sender: FDA-Public Use
  Company Number: US-AMGEN-USASP2014059700

PATIENT
  Age: 18 Year
  Sex: Female

DRUGS (1)
  1. ENBREL [Suspect]
     Active Substance: ETANERCEPT
     Indication: PSORIASIS
     Dosage: 50 MG, 2 TIMES/WK
     Route: 058
     Dates: start: 20140710, end: 201408

REACTIONS (11)
  - Hypoaesthesia [Recovered/Resolved]
  - Injection site reaction [Recovered/Resolved]
  - Gastric disorder [Recovered/Resolved]
  - Fall [Recovered/Resolved]
  - Injection site warmth [Not Recovered/Not Resolved]
  - Dizziness [Recovered/Resolved]
  - Injection site discolouration [Not Recovered/Not Resolved]
  - Injection site erythema [Not Recovered/Not Resolved]
  - Vomiting [Recovered/Resolved]
  - Injection site macule [Not Recovered/Not Resolved]
  - Nausea [Not Recovered/Not Resolved]

NARRATIVE: CASE EVENT DATE: 20140710
